FAERS Safety Report 21350079 (Version 1)
Quarter: 2022Q3

REPORT INFORMATION
  Report Type: Spontaneous
  Country: US (occurrence: US)
  Receive Date: 20220919
  Receipt Date: 20220919
  Transmission Date: 20221027
  Serious: Yes (Hospitalization)
  Sender: FDA-Public Use
  Company Number: US-SAREPTA THERAPEUTICS INC.-SRP2022-002259

PATIENT
  Sex: Male
  Weight: 19.4 kg

DRUGS (2)
  1. VYONDYS 53 [Suspect]
     Active Substance: GOLODIRSEN
     Indication: Duchenne muscular dystrophy
     Dosage: 600 MILLIGRAM, WEEKLY
     Route: 042
     Dates: start: 20210318, end: 20220215
  2. VITAMIN D NOS [Concomitant]
     Active Substance: VITAMIN D NOS
     Indication: Product used for unknown indication
     Dosage: UNK

REACTIONS (8)
  - Constipation [Unknown]
  - Depression [Recovered/Resolved]
  - Asthenia [Recovered/Resolved]
  - Emotional disorder [Recovered/Resolved]
  - Gait inability [Unknown]
  - Abdominal pain [Unknown]
  - Pyrexia [Unknown]
  - Vomiting [Unknown]

NARRATIVE: CASE EVENT DATE: 20210101
